FAERS Safety Report 22629681 (Version 2)
Quarter: 2023Q2

REPORT INFORMATION
  Report Type: Spontaneous
  Country: None (occurrence: JP)
  Receive Date: 20230622
  Receipt Date: 20230630
  Transmission Date: 20230722
  Serious: Yes (Hospitalization)
  Sender: FDA-Public Use
  Company Number: JP-Ascend Therapeutics US, LLC-2143011

PATIENT
  Age: 72 Year
  Sex: Female

DRUGS (2)
  1. ESTROGEL [Suspect]
     Active Substance: ESTRADIOL
     Indication: Autonomic nervous system imbalance
     Route: 062
     Dates: start: 2023
  2. ESTROGEL [Suspect]
     Active Substance: ESTRADIOL
     Route: 062
     Dates: start: 2023

REACTIONS (2)
  - Pyrexia [Not Recovered/Not Resolved]
  - Deep vein thrombosis [Recovering/Resolving]
